FAERS Safety Report 19471251 (Version 1)
Quarter: 2021Q2

REPORT INFORMATION
  Report Type: Spontaneous
  Country: US (occurrence: US)
  Receive Date: 20210628
  Receipt Date: 20210628
  Transmission Date: 20210717
  Serious: No
  Sender: FDA-Public Use
  Company Number: None

PATIENT
  Age: 62 Year
  Sex: Female

DRUGS (3)
  1. PIQRAY [Suspect]
     Active Substance: ALPELISIB
     Indication: BREAST CANCER
     Route: 048
     Dates: start: 20210614, end: 20210623
  2. HUMALOG 100U/ML KWIK PEN [Concomitant]
  3. TRESIBA FLEX TOUCH PEN (U?100) [Concomitant]

REACTIONS (5)
  - Vision blurred [None]
  - Blood glucose increased [None]
  - Fatigue [None]
  - Somnolence [None]
  - Nausea [None]

NARRATIVE: CASE EVENT DATE: 20210617
